FAERS Safety Report 9886924 (Version 1)
Quarter: 2014Q1

REPORT INFORMATION
  Report Type: Spontaneous
  Country: US (occurrence: US)
  Receive Date: 20140211
  Receipt Date: 20140211
  Transmission Date: 20141002
  Serious: No
  Sender: FDA-Public Use
  Company Number: US-009507513-1402USA002957

PATIENT
  Sex: Female
  Weight: 54.42 kg

DRUGS (2)
  1. IMPLANON [Suspect]
     Dosage: 3 YEAR IMPLANT
     Route: 059
     Dates: start: 20110222
  2. INSULIN [Concomitant]

REACTIONS (1)
  - Amenorrhoea [Unknown]
